FAERS Safety Report 21958980 (Version 3)
Quarter: 2023Q1

REPORT INFORMATION
  Report Type: Other
  Country: US (occurrence: None)
  Receive Date: 20230206
  Receipt Date: 20230213
  Transmission Date: 20230418
  Serious: Yes (Death)
  Sender: FDA-Public Use
  Company Number: US-ROCHE-3278565

PATIENT
  Age: 76 Year
  Sex: Male

DRUGS (7)
  1. ESBRIET [Suspect]
     Active Substance: PIRFENIDONE
     Indication: Idiopathic pulmonary fibrosis
     Dosage: TAKE 1 TABLET BY MOUTH 3 TIMES A DAY WITH MEALS
     Route: 048
     Dates: start: 20190918
  2. ESBRIET [Suspect]
     Active Substance: PIRFENIDONE
     Indication: Chronic respiratory failure
  3. ESBRIET [Suspect]
     Active Substance: PIRFENIDONE
     Indication: Hypoxia
  4. ESBRIET [Suspect]
     Active Substance: PIRFENIDONE
     Indication: Acute respiratory failure
  5. ESBRIET [Suspect]
     Active Substance: PIRFENIDONE
     Indication: Idiopathic pulmonary fibrosis
     Dosage: TAKE 3 CAPSULE(S) BY MOUTH 3 TIMES A DAY WITH MEALS
     Route: 048
  6. ESBRIET [Suspect]
     Active Substance: PIRFENIDONE
     Indication: Chronic respiratory failure
  7. ESBRIET [Suspect]
     Active Substance: PIRFENIDONE
     Indication: Hypoxia

REACTIONS (1)
  - Death [Fatal]

NARRATIVE: CASE EVENT DATE: 20230124
